FAERS Safety Report 4787756-3 (Version None)
Quarter: 2005Q3

REPORT INFORMATION
  Report Type: 
  Country: None (occurrence: None)
  Receive Date: 20050914
  Receipt Date: 20050119
  Transmission Date: 20060218
  Serious: Yes (Hospitalization)
  Sender: FDA-Public Use
  Company Number: 163-20785-05010373

PATIENT
  Age: 69 Year
  Sex: Female

DRUGS (6)
  1. THALOMID [Suspect]
     Indication: MULTIPLE MYELOMA
     Dosage: 100 MG, QD, ORAL
     Route: 048
     Dates: start: 20040202, end: 20050202
  2. COUMADIN [Concomitant]
  3. DEXAMETHASONE [Concomitant]
  4. SERZONE [Concomitant]
  5. DARVOCET-N 100 [Concomitant]
  6. GLUCOSAMINE (GLUCOSAMINE) [Concomitant]

REACTIONS (5)
  - DEEP VEIN THROMBOSIS [None]
  - FALL [None]
  - NEUROPATHY PERIPHERAL [None]
  - OEDEMA PERIPHERAL [None]
  - VISION BLURRED [None]
